FAERS Safety Report 19487267 (Version 1)
Quarter: 2021Q3

REPORT INFORMATION
  Report Type: Spontaneous
  Country: US (occurrence: US)
  Receive Date: 20210702
  Receipt Date: 20210702
  Transmission Date: 20211014
  Serious: Yes (Life-Threatening, Hospitalization)
  Sender: FDA-Public Use
  Company Number: US-MYLANLABS-2021M1038759

PATIENT
  Age: 27 Year
  Sex: Male

DRUGS (2)
  1. NALOXONE [Suspect]
     Active Substance: NALOXONE
     Indication: UNRESPONSIVE TO STIMULI
     Dosage: UNK
     Route: 065
  2. NALOXONE [Suspect]
     Active Substance: NALOXONE
     Indication: DRUG THERAPY

REACTIONS (1)
  - Drug ineffective [Unknown]
